FAERS Safety Report 23488674 (Version 1)
Quarter: 2024Q1

REPORT INFORMATION
  Report Type: Spontaneous
  Country: NL (occurrence: NL)
  Receive Date: 20240206
  Receipt Date: 20240206
  Transmission Date: 20240410
  Serious: Yes (Death)
  Sender: FDA-Public Use
  Company Number: None

PATIENT

DRUGS (2)
  1. XCOPRI [Interacting]
     Active Substance: CENOBAMATE
     Indication: Epilepsy
     Dosage: 1X PER DAY 1 PIECE (200 MG,1 IN 1 D)
     Route: 048
     Dates: start: 20230501
  2. MIDAZOLAM HYDROCHLORIDE [Interacting]
     Active Substance: MIDAZOLAM HYDROCHLORIDE
     Indication: Palliative sedation
     Dosage: 240 MG/DAY (240 MG,1 IN 1 D)
     Route: 065

REACTIONS (2)
  - Therapeutic product effect decreased [Fatal]
  - Drug interaction [Fatal]
